FAERS Safety Report 16142084 (Version 2)
Quarter: 2019Q2

REPORT INFORMATION
  Report Type: Report from Study
  Country: US (occurrence: US)
  Receive Date: 20190401
  Receipt Date: 20190509
  Transmission Date: 20190711
  Serious: No
  Sender: FDA-Public Use
  Company Number: US-SA-2019SA085086

PATIENT
  Age: 61 Year
  Sex: Male

DRUGS (1)
  1. DUPILUMAB [Suspect]
     Active Substance: DUPILUMAB
     Indication: DERMATITIS ATOPIC
     Dosage: 300 MG, QOW
     Route: 058
     Dates: start: 20190102

REACTIONS (5)
  - Scab [Unknown]
  - Erythema [Unknown]
  - Impaired healing [Unknown]
  - Drug ineffective [Unknown]
  - Wound [Recovering/Resolving]
